FAERS Safety Report 4578420-4 (Version None)
Quarter: 2005Q1

REPORT INFORMATION
  Report Type: 
  Country: None (occurrence: None)
  Receive Date: 20050203
  Receipt Date: 20050203
  Transmission Date: 20050727
  Serious: No
  Sender: FDA-Public Use
  Company Number: None

PATIENT

DRUGS (1)
  1. BEXTRA [Suspect]
     Dosage: CONSUMED 6 TABLETS
     Dates: start: 20030623, end: 20030628

REACTIONS (5)
  - GASTROINTESTINAL DISORDER [None]
  - NERVOUS SYSTEM DISORDER [None]
  - RENAL DISORDER [None]
  - SKIN DISORDER [None]
  - URINARY TRACT DISORDER [None]
